FAERS Safety Report 6518786-9 (Version None)
Quarter: 2009Q4

REPORT INFORMATION
  Report Type: 
  Country: None (occurrence: None)
  Receive Date: 20091228
  Receipt Date: 20091127
  Transmission Date: 20100525
  Serious: No
  Sender: FDA-Public Use
  Company Number: US-BAYER-200941738NA

PATIENT
  Age: 37 Year
  Sex: Female

DRUGS (1)
  1. MIRENA [Suspect]
     Indication: CONTRACEPTION
     Dosage: CONTINUOUS
     Route: 015
     Dates: start: 20090817, end: 20091026

REACTIONS (4)
  - ACNE [None]
  - MENSTRUATION DELAYED [None]
  - MOOD SWINGS [None]
  - VAGINAL HAEMORRHAGE [None]
